FAERS Safety Report 6368790-9 (Version None)
Quarter: 2009Q3

REPORT INFORMATION
  Report Type: 
  Country: None (occurrence: None)
  Receive Date: 20090917
  Receipt Date: 20090917
  Transmission Date: 20100115
  Serious: Yes (Other)
  Sender: FDA-Public Use
  Company Number: None

PATIENT
  Sex: Female
  Weight: 59.1 kg

DRUGS (1)
  1. AMPHETAMINE SULFATE TAB [Suspect]
     Indication: ATTENTION DEFICIT/HYPERACTIVITY DISORDER
     Dosage: 20MG  TABLET (TAKE 1+1/2 TABLETS) TWICE DAILY ORAL
     Route: 048
     Dates: start: 20090501, end: 20090801

REACTIONS (3)
  - ECONOMIC PROBLEM [None]
  - EMOTIONAL DISORDER [None]
  - PRODUCT QUALITY ISSUE [None]
